FAERS Safety Report 13431743 (Version 2)
Quarter: 2017Q2

REPORT INFORMATION
  Report Type: Spontaneous
  Country: US (occurrence: US)
  Receive Date: 20170412
  Receipt Date: 20170414
  Transmission Date: 20170830
  Serious: Yes (Hospitalization)
  Sender: FDA-Public Use
  Company Number: US-B.I. PHARMACEUTICALS,INC./RIDGEFIELD-2017-BI-020269

PATIENT
  Age: 70 Year
  Sex: Male

DRUGS (17)
  1. SPIRIVA [Suspect]
     Active Substance: TIOTROPIUM BROMIDE MONOHYDRATE
     Indication: EMPHYSEMA
     Dosage: 2 INHALATIONS FROM ONE CAPSULE DAILY;  FORM STRENGTH: 18 MCG; FORMULATION: CAPSULE? ADMINISTRATION C
     Route: 055
     Dates: start: 2004
  2. FUROSEMIDE. [Concomitant]
     Active Substance: FUROSEMIDE
     Indication: FLUID RETENTION
     Dosage: ONE CAPLET DAILY;  FORM STRENGTH: 20MG; FORMULATION: CAPLET
     Route: 048
  3. BACLOFEN. [Concomitant]
     Active Substance: BACLOFEN
     Indication: PRODUCT USED FOR UNKNOWN INDICATION
     Dosage: TWO CAPLETS AS NEEDED;  FORM STRENGTH: 10MG; FORMULATION: CAPLET
     Route: 048
  4. LISINOPRIL. [Concomitant]
     Active Substance: LISINOPRIL
     Indication: HYPERTENSION
     Dosage: ONE CAPLET DAILY;  FORM STRENGTH: 2.5 MG; FORMULATION: CAPLET
     Route: 048
  5. BABY ASPIRIN [Concomitant]
     Active Substance: ASPIRIN
     Indication: PRODUCT USED FOR UNKNOWN INDICATION
     Dosage: ONE CAPLET DAILY;  FORM STRENGTH: 81MG; FORMULATION: CAPLET
     Route: 048
  6. PRENDISONE [Concomitant]
     Indication: PRODUCT USED FOR UNKNOWN INDICATION
     Dosage: TAKE AS DIRECTED; TAPER PACK;  FORM STRENGTH: 10MG; FORMULATION: TABLET
     Route: 048
     Dates: start: 20170403
  7. AZITHROMYCIN ANHYDROUS. [Concomitant]
     Active Substance: AZITHROMYCIN ANHYDROUS
     Indication: PRODUCT USED FOR UNKNOWN INDICATION
     Dosage: TAKE AS DIRECTED; Z-PACK;  FORM STRENGTH: 250MG; FORMULATION: CAPLET
     Route: 048
  8. SYMBICORT [Concomitant]
     Active Substance: BUDESONIDE\FORMOTEROL FUMARATE DIHYDRATE
     Indication: PRODUCT USED FOR UNKNOWN INDICATION
     Dosage: 2 PUFFS  BID;  FORM STRENGTH: 160/4.5MG; FORMULATION: INHALATION AEROSOL
     Route: 055
  9. VITAMIN C [Concomitant]
     Active Substance: ASCORBIC ACID
     Indication: VITAMIN SUPPLEMENTATION
     Dosage: ONE CAPLET TID;  FORM STRENGTH: 1000MG; FORMULATION: CAPLET
     Route: 048
  10. MULTIVITAMIN [Concomitant]
     Active Substance: VITAMINS
     Indication: VITAMIN SUPPLEMENTATION
     Dosage: ONE CAPLET DAILY;  FORMULATION: CAPLET;
     Route: 048
  11. ALBUTEROL AND IPRATROPIUM BROMIDE [Concomitant]
     Indication: PRODUCT USED FOR UNKNOWN INDICATION
     Dosage: VIA NEBULIZER QID;  FORM STRENGTH: 0.5MG/3MG IN 3ML; FORMULATION: INHALATION AEROSOL
     Route: 055
     Dates: start: 20170403
  12. FINESTARIDE [Concomitant]
     Indication: PRODUCT USED FOR UNKNOWN INDICATION
     Dosage: ONE CAPLET DAILY;  FORM STRENGTH: 5MG; FORMULATION: CAPLET
     Route: 048
  13. OMEPRAZOLE. [Concomitant]
     Active Substance: OMEPRAZOLE
     Indication: HYPERCHLORHYDRIA
     Dosage: ONE CAPSULE DAILY;  FORM STRENGTH: 20MG; FORMULATION: CAPSULE
     Route: 048
  14. LYRICA [Concomitant]
     Active Substance: PREGABALIN
     Indication: NEUROPATHY PERIPHERAL
     Dosage: ONE CAPSULE IN THE MORNING (200MG) AND ONE CAPSULE IN THE EVENING (300MG);  FORM STRENGTH: 200MG/300
     Route: 048
  15. REQUIP [Concomitant]
     Active Substance: ROPINIROLE HYDROCHLORIDE
     Indication: RESTLESS LEGS SYNDROME
     Dosage: ONE CAPLET DAILY;  FORM STRENGTH: 0.5 MG; FORMULATION: CAPLET
     Route: 048
  16. AMOX-CALV [Concomitant]
     Indication: PRODUCT USED FOR UNKNOWN INDICATION
     Dosage: ONE CAPLET BID;  FORM STRENGTH: 875MG; FORMULATION: CAPLET
     Route: 048
  17. ALAPRAZAM [Concomitant]
     Indication: ANXIETY
     Dosage: ONE TABLET AS NEEDED;  FORM STRENGTH: 0.5 MG; FORMULATION: TABLET
     Route: 048
     Dates: start: 20170323

REACTIONS (5)
  - Wheezing [Recovered/Resolved]
  - Muscle spasms [Unknown]
  - Dyspnoea [Unknown]
  - Anxiety [Unknown]
  - Dehydration [Unknown]

NARRATIVE: CASE EVENT DATE: 20170323
